FAERS Safety Report 10206835 (Version 1)
Quarter: 2014Q2

REPORT INFORMATION
  Report Type: Spontaneous
  Country: CA (occurrence: CA)
  Receive Date: 20140530
  Receipt Date: 20140530
  Transmission Date: 20141212
  Serious: Yes (Other)
  Sender: FDA-Public Use
  Company Number: CA-PFIZER INC-2014144071

PATIENT
  Sex: Male
  Weight: 78 kg

DRUGS (13)
  1. IRINOTECAN HCL [Suspect]
     Dosage: 160 MG/M2, CYCLIC
     Route: 042
  2. LOVENOX [Suspect]
     Dosage: 40 MG, 1X/DAY
     Route: 058
  3. ELOXATIN [Suspect]
     Dosage: 100 MG/M2, CYCLIC
     Route: 042
  4. XELODA [Suspect]
     Dosage: 950 MG/M2, CYCLIC
     Route: 048
  5. XELODA [Suspect]
     Dosage: 825 MG/M2, CYCLIC
     Route: 048
  6. ACETAMINOPHEN [Concomitant]
  7. CEFTRIAXONE [Concomitant]
  8. SALMETEROL XINAFOATE/FLUTICASONE PROPIONATE [Concomitant]
  9. HYDROMORPHONE [Concomitant]
  10. KETAMINE HYDROCHLORIDE [Concomitant]
  11. METFORMIN HYDROCHLORIDE [Concomitant]
  12. PANTOPRAZOLE [Concomitant]
  13. TRAMADOL [Concomitant]

REACTIONS (2)
  - Haematoma infection [Recovered/Resolved with Sequelae]
  - Intra-abdominal haematoma [Recovered/Resolved with Sequelae]
